FAERS Safety Report 16213523 (Version 2)
Quarter: 2019Q3

REPORT INFORMATION
  Report Type: Spontaneous
  Country: CA (occurrence: CA)
  Receive Date: 20190418
  Receipt Date: 20190711
  Transmission Date: 20191004
  Serious: Yes (Other)
  Sender: FDA-Public Use
  Company Number: CA-PFIZER INC-2019113583

PATIENT
  Age: 37 Year
  Sex: Female

DRUGS (2)
  1. XELJANZ [Suspect]
     Active Substance: TOFACITINIB CITRATE
     Indication: COLITIS ULCERATIVE
     Dosage: 10 MG TWICE DAILY (TWO TABLETS IN THE MORNING AM AND TWO TABLETS IN THE EVENING)
     Route: 048
     Dates: start: 20190309
  2. MEZAVANT [Concomitant]
     Active Substance: MESALAMINE
     Dosage: UNK

REACTIONS (6)
  - Fatigue [Unknown]
  - Haematochezia [Recovered/Resolved]
  - Stress [Unknown]
  - Nausea [Unknown]
  - Gallbladder disorder [Unknown]
  - Frequent bowel movements [Recovering/Resolving]
